FAERS Safety Report 19104712 (Version 1)
Quarter: 2021Q2

REPORT INFORMATION
  Report Type: Spontaneous
  Country: US (occurrence: US)
  Receive Date: 20210407
  Receipt Date: 20210407
  Transmission Date: 20210717
  Serious: Yes (Other)
  Sender: FDA-Public Use
  Company Number: US-ASTRAZENECA-2021A229363

PATIENT
  Sex: Male
  Weight: 127 kg

DRUGS (2)
  1. BRILINTA [Suspect]
     Active Substance: TICAGRELOR
     Indication: STENT PLACEMENT
     Route: 048
     Dates: start: 20190621
  2. MODERNA COVID?19 VACCINE [Suspect]
     Active Substance: CX-024414
     Route: 065
     Dates: start: 20210325

REACTIONS (5)
  - Complication associated with device [Unknown]
  - Hyperhidrosis [Unknown]
  - Poisoning [Unknown]
  - Arthropod sting [Unknown]
  - Arthralgia [Unknown]

NARRATIVE: CASE EVENT DATE: 20210325
